FAERS Safety Report 6297853-1 (Version None)
Quarter: 2009Q3

REPORT INFORMATION
  Report Type: 
  Country: None (occurrence: None)
  Receive Date: 20090804
  Receipt Date: 20090804
  Transmission Date: 20100115
  Serious: No
  Sender: FDA-Public Use
  Company Number: None

PATIENT
  Age: 57 Year
  Sex: Female
  Weight: 68 kg

DRUGS (2)
  1. MIDAZOLAM HCL [Suspect]
     Indication: SEDATION
     Dosage: 8 MG, ONCE, IV; ONE TIME
     Route: 042
     Dates: start: 20090720, end: 20090720
  2. FENTANYL-100 [Suspect]
     Indication: SEDATION
     Dosage: 175 MCG, ONCE, IV; ONE TIME
     Route: 042
     Dates: start: 20090720, end: 20090720

REACTIONS (1)
  - RASH ERYTHEMATOUS [None]
